FAERS Safety Report 9945409 (Version 1)
Quarter: 2014Q1

REPORT INFORMATION
  Report Type: Spontaneous
  Country: US (occurrence: US)
  Receive Date: 20140303
  Receipt Date: 20140303
  Transmission Date: 20141002
  Serious: No
  Sender: FDA-Public Use
  Company Number: US-AMGEN-USASP2013074184

PATIENT
  Age: 70 Year
  Sex: Female
  Weight: 62.13 kg

DRUGS (10)
  1. ENBREL [Suspect]
     Indication: PRODUCT USED FOR UNKNOWN INDICATION
     Dosage: 50 MG, ONCE A WEEK
     Route: 058
  2. METHOTREXATE [Concomitant]
     Dosage: 2.5 MG, UNK
  3. ATENOLOL [Concomitant]
     Dosage: 25 MG, UNK
  4. PRAVASTATIN [Concomitant]
     Dosage: 40 MG, UNK
  5. ADVAIR [Concomitant]
     Dosage: DISKU AER 100/50
  6. NIFEDIPINE [Concomitant]
     Dosage: 20 MG, UNK
  7. KLOR-CON M15 [Concomitant]
     Dosage: UNK
  8. VITAMIN D3 [Concomitant]
     Dosage: 1000 UNIT, UNK
  9. TRIAMTEREEN/HYDROCHLOORTHIAZIDE [Concomitant]
     Dosage: 37.5-25
  10. CALTRATE +D                        /07451701/ [Concomitant]
     Dosage: 600 UNK, UNK

REACTIONS (4)
  - Dyspnoea [Unknown]
  - Muscle disorder [Unknown]
  - Myalgia [Unknown]
  - Muscle spasms [Unknown]
